FAERS Safety Report 13592670 (Version 1)
Quarter: 2017Q2

REPORT INFORMATION
  Report Type: Spontaneous
  Country: FR (occurrence: FR)
  Receive Date: 20170530
  Receipt Date: 20170530
  Transmission Date: 20170830
  Serious: Yes (Hospitalization)
  Sender: FDA-Public Use
  Company Number: FR-JNJFOC-20170521826

PATIENT
  Age: 88 Year
  Sex: Female

DRUGS (13)
  1. DIAMICRON [Concomitant]
     Active Substance: GLICLAZIDE
     Dosage: LONG TERM TREATMENT
     Route: 048
  2. BURINEX [Concomitant]
     Active Substance: BUMETANIDE
     Dosage: LONG TERM TREATMENT
     Route: 048
  3. LANTUS [Concomitant]
     Active Substance: INSULIN GLARGINE
     Route: 058
  4. KARDEGIC [Concomitant]
     Active Substance: ASPIRIN LYSINE
     Dosage: SACHET FOR ORAL SOLUTION - LONG TERM TREATMENT
     Route: 048
  5. ATORVASTATIN [Concomitant]
     Active Substance: ATORVASTATIN
     Dosage: LONG TERM TREATMENT
     Route: 048
  6. NATISPRAY [Concomitant]
     Active Substance: NITROGLYCERIN
     Dosage: LONG TERM TREATMENT
     Route: 048
  7. PANTOPRAZOLE [Concomitant]
     Active Substance: PANTOPRAZOLE
     Dosage: LONG TERM TREATMENT
     Route: 048
  8. DUROGESIC [Suspect]
     Active Substance: FENTANYL
     Indication: CANCER PAIN
     Route: 062
     Dates: start: 20161026
  9. DUROGESIC [Suspect]
     Active Substance: FENTANYL
     Indication: CANCER PAIN
     Route: 062
     Dates: start: 20161102
  10. ATENOLOL. [Concomitant]
     Active Substance: ATENOLOL
     Dosage: LONG TERM TREATMENT
     Route: 048
  11. ABSTRAL [Concomitant]
     Active Substance: FENTANYL CITRATE
     Route: 060
     Dates: start: 20161026
  12. AMLODIPINE [Concomitant]
     Active Substance: AMLODIPINE BESYLATE
     Route: 048
  13. VALSARTAN. [Concomitant]
     Active Substance: VALSARTAN
     Dosage: LONG TERM TREATMENT
     Route: 048

REACTIONS (2)
  - Fall [Recovered/Resolved]
  - Confusional state [Recovered/Resolved]

NARRATIVE: CASE EVENT DATE: 20161103
